FAERS Safety Report 9963375 (Version 1)
Quarter: 2014Q1

REPORT INFORMATION
  Report Type: Report from Study
  Country: US (occurrence: US)
  Receive Date: 20140305
  Receipt Date: 20140305
  Transmission Date: 20141002
  Serious: No
  Sender: FDA-Public Use
  Company Number: US-ABBVIE-13P-163-1119602-00

PATIENT
  Age: 44 Year
  Sex: Female

DRUGS (6)
  1. HUMIRA [Suspect]
     Indication: CROHN^S DISEASE
     Dosage: LOADING DOSE
     Dates: start: 20130711
  2. AZATHIOPRINE [Concomitant]
     Indication: CROHN^S DISEASE
     Dosage: 1 PILL AT BEDTIME
  3. CLARITIN-D [Concomitant]
     Indication: SEASONAL ALLERGY
     Dosage: 1 PILL
  4. COLACE [Concomitant]
     Indication: CROHN^S DISEASE
     Dosage: PILLS
  5. TYLENOL [Concomitant]
     Indication: PRODUCT USED FOR UNKNOWN INDICATION
  6. IBUPROFEN [Concomitant]
     Indication: PRODUCT USED FOR UNKNOWN INDICATION

REACTIONS (5)
  - Incorrect route of drug administration [Recovering/Resolving]
  - Wrong technique in drug usage process [Recovering/Resolving]
  - Injury associated with device [Recovering/Resolving]
  - Incorrect dose administered [Recovering/Resolving]
  - Injection site erythema [Recovering/Resolving]
